FAERS Safety Report 5757766-8 (Version None)
Quarter: 2008Q2

REPORT INFORMATION
  Report Type: 
  Country: None (occurrence: None)
  Receive Date: 20080529
  Receipt Date: 20080520
  Transmission Date: 20081010
  Serious: Yes (Death)
  Sender: FDA-Public Use
  Company Number: URSO-2008-041

PATIENT
  Age: 67 Year
  Sex: Male

DRUGS (11)
  1. URSO 250 [Suspect]
     Indication: HEPATIC CIRRHOSIS
     Dosage: 300 MG/DAY PO
     Route: 048
     Dates: start: 20040705, end: 20080123
  2. CYANAMIDE WF (CYANAMIDE) [Suspect]
     Indication: ALCOHOL POISONING
     Dosage: 5 ML/DAY PO
     Route: 048
     Dates: start: 20080117, end: 20080122
  3. CYANAMIDE WF (CYANAMIDE) [Suspect]
     Indication: ALCOHOLISM
     Dosage: 5 ML/DAY PO
     Route: 048
     Dates: start: 20080117, end: 20080122
  4. ALLOPURINOL [Suspect]
     Dosage: 200 DF PO
     Route: 048
  5. LASIX [Suspect]
     Dosage: 20 DF PO
     Route: 048
  6. ALDACTONE A (SPIRONOLACTONE0 [Suspect]
     Dosage: 25 DF PO
     Route: 048
  7. ARICEPT [Suspect]
     Dosage: 5 DF PO
     Route: 048
  8. ALLOPURINOL [Concomitant]
  9. LASIX [Concomitant]
  10. ALDACTONE [Concomitant]
  11. ARICEPT [Concomitant]

REACTIONS (6)
  - CHEST DISCOMFORT [None]
  - CONVULSION [None]
  - FLUSHING [None]
  - LOSS OF CONSCIOUSNESS [None]
  - PALPITATIONS [None]
  - SUBARACHNOID HAEMORRHAGE [None]
